FAERS Safety Report 24734657 (Version 2)
Quarter: 2024Q4

REPORT INFORMATION
  Report Type: Spontaneous
  Country: US (occurrence: US)
  Receive Date: 20241214
  Receipt Date: 20241214
  Transmission Date: 20250115
  Serious: Yes (Hospitalization, Other)
  Sender: AMGEN
  Company Number: US-AMGEN-USASP2024239879

PATIENT
  Age: 57 Year
  Sex: Female

DRUGS (42)
  1. CINACALCET HYDROCHLORIDE [Suspect]
     Active Substance: CINACALCET HYDROCHLORIDE
     Indication: Product used for unknown indication
     Dosage: 90 MG 1 PER DIEM
     Route: 065
  2. ETANERCEPT [Suspect]
     Active Substance: ETANERCEPT
     Indication: Hidradenitis
     Dosage: UNK
     Route: 065
  3. CLINDAMYCIN [Concomitant]
     Active Substance: CLINDAMYCIN
     Dosage: 300 MILLIGRAM, BID
     Route: 065
  4. CLINDAMYCIN [Concomitant]
     Active Substance: CLINDAMYCIN
     Dosage: 300 MILLIGRAM, BID
     Route: 065
  5. RIFAMPIN [Concomitant]
     Active Substance: RIFAMPIN
     Dosage: 300 MILLIGRAM, QD
     Route: 048
  6. RIFAMPIN [Concomitant]
     Active Substance: RIFAMPIN
     Dosage: 300 MILLIGRAM, QD
     Route: 048
  7. RIFAMPIN [Concomitant]
     Active Substance: RIFAMPIN
     Dosage: 300 MILLIGRAM, QD
     Route: 048
  8. RIFAMPIN [Concomitant]
     Active Substance: RIFAMPIN
     Dosage: 300 MILLIGRAM, QD
     Route: 048
  9. MINOCYCLINE [Concomitant]
     Active Substance: MINOCYCLINE HYDROCHLORIDE
     Dosage: 115 MILLIGRAM
     Route: 065
  10. MINOCYCLINE [Concomitant]
     Active Substance: MINOCYCLINE HYDROCHLORIDE
     Dosage: 115 MILLIGRAM
     Route: 065
  11. TRIAMCINOLONE [Concomitant]
     Active Substance: TRIAMCINOLONE
     Dosage: UNK
     Route: 026
  12. TRIAMCINOLONE [Concomitant]
     Active Substance: TRIAMCINOLONE
     Dosage: FORTNIGHTLY
     Route: 026
  13. SILVER NITRATE [Concomitant]
     Active Substance: SILVER NITRATE
     Dosage: UNK
     Route: 065
  14. DULOXETINE [Concomitant]
     Active Substance: DULOXETINE
     Dosage: 60 MILLIGRAM, QD
     Route: 065
  15. PREGABALIN [Concomitant]
     Active Substance: PREGABALIN
     Indication: Pain
     Dosage: 100 MILLIGRAM, BID
     Route: 065
  16. PREGABALIN [Concomitant]
     Active Substance: PREGABALIN
     Indication: Depression
  17. DAPSONE [Concomitant]
     Active Substance: DAPSONE
     Dosage: UNK
     Route: 061
  18. DAPSONE [Concomitant]
     Active Substance: DAPSONE
     Dosage: 100 MILLIGRAM, BID
     Route: 065
  19. DAPSONE [Concomitant]
     Active Substance: DAPSONE
     Dosage: BID
     Route: 061
  20. DUTASTERIDE [Concomitant]
     Active Substance: DUTASTERIDE
     Dosage: 0.5 MILLIGRAM, QD
     Route: 065
  21. LINEZOLID [Concomitant]
     Active Substance: LINEZOLID
     Dosage: 1.2 GRAM, QD
     Route: 040
  22. LINEZOLID [Concomitant]
     Active Substance: LINEZOLID
     Dosage: 600 MILLIGRAM, QD
     Route: 040
  23. MEROPENEM [Concomitant]
     Active Substance: MEROPENEM
     Dosage: 1 GRAM, QD
     Route: 040
  24. SEVELAMER CARBONATE [Concomitant]
     Active Substance: SEVELAMER CARBONATE
     Dosage: 800 MILLIGRAM (4 TABS WITH MEALS 2 TABS WITH SNACKS)
     Route: 065
  25. FOLBEE PLUS [Concomitant]
     Dosage: 1 PER DIEM
     Route: 065
  26. ESOMEPRAZOLE [Concomitant]
     Active Substance: ESOMEPRAZOLE
     Dosage: 40 MG 1 PER DIEM
     Route: 065
  27. SYNTHROID [Concomitant]
     Active Substance: LEVOTHYROXINE SODIUM
     Dosage: 0.1 MILLIGRAM 1 PER DIEM
     Route: 065
  28. FEXOFENADINE [Concomitant]
     Active Substance: FEXOFENADINE HYDROCHLORIDE
     Dosage: 180 MILLIGRAM 1 PER DIEM
     Route: 065
  29. FENOFIBRATE [Concomitant]
     Active Substance: FENOFIBRATE
     Dosage: 48 MILLIGRAM 1 PER DIEM
     Route: 065
  30. CELECOXIB [Concomitant]
     Active Substance: CELECOXIB
     Dosage: 200 MILLIGRAM 1 PER DIEM
     Route: 065
  31. SODIUM BICARBONATE [Concomitant]
     Active Substance: SODIUM BICARBONATE
     Dosage: 325 MILLIGRAM 2 PER DIEM
     Route: 065
  32. ESZOPICLONE [Concomitant]
     Active Substance: ESZOPICLONE
     Dosage: 2 MILLIGRAM WHEN NEEDED
     Route: 065
  33. OXYCODONE AND ACETAMINOPHEN [Concomitant]
     Active Substance: ACETAMINOPHEN\OXYCODONE HYDROCHLORIDE
     Dosage: 5-325MG WHEN NEEDED-TWICE A MONTH BEFORE VISIT
     Route: 065
  34. FISH OIL [Concomitant]
     Active Substance: FISH OIL
     Dosage: 1200 MILLIGRAM 2 PER DIEM
     Route: 065
  35. FLAXSEED [Concomitant]
     Active Substance: FLAX SEED
     Dosage: 1300 MILLIGRAM 2 PER DIEM
     Route: 065
  36. GLUCOSAMINE [Concomitant]
     Active Substance: GLUCOSAMINE
     Dosage: 1500 MILLIGRAM 2 PER DIEM
     Route: 065
  37. CALCIUM\VITAMIN D [Concomitant]
     Active Substance: CALCIUM\VITAMIN D
     Dosage: 600 MILLIGRAM 2 PER DIEM
     Route: 065
  38. DICYCLOMINE HYDROCHLORIDE [Concomitant]
     Active Substance: DICYCLOMINE HYDROCHLORIDE
     Dosage: 10 MILLIGRAM 2 PER DIEM
     Route: 065
  39. VANCOMYCIN [Concomitant]
     Active Substance: VANCOMYCIN
     Dosage: UNK
     Route: 065
  40. ACITRETIN [Concomitant]
     Active Substance: ACITRETIN
     Dosage: 10 MILLIGRAM, QD
     Route: 065
  41. ACITRETIN [Concomitant]
     Active Substance: ACITRETIN
     Dosage: 10 MILLIGRAM, BID
     Route: 065
  42. ACITRETIN [Concomitant]
     Active Substance: ACITRETIN
     Dosage: 25 MILLIGRAM, BID
     Route: 065

REACTIONS (8)
  - Fall [Unknown]
  - Limb injury [Unknown]
  - Necrotising fasciitis [Unknown]
  - Hidradenitis [Unknown]
  - Drug ineffective for unapproved indication [Unknown]
  - Pilonidal disease [Unknown]
  - Diarrhoea [Unknown]
  - Off label use [Unknown]
